FAERS Safety Report 5639399-7 (Version None)
Quarter: 2008Q1

REPORT INFORMATION
  Report Type: 
  Country: None (occurrence: None)
  Receive Date: 20080222
  Receipt Date: 20080215
  Transmission Date: 20080703
  Serious: Yes (Death)
  Sender: FDA-Public Use
  Company Number: 163-21880-08011494

PATIENT
  Age: 82 Year
  Sex: Male

DRUGS (4)
  1. REVLIMID [Suspect]
     Indication: MULTIPLE MYELOMA
     Dosage: 15 MG, 1 IN 1 D, ORAL; 10 MG, 1 IN 1 D, ORAL
     Route: 048
     Dates: start: 20071205, end: 20071218
  2. REVLIMID [Suspect]
     Indication: NEOPLASM
     Dosage: 15 MG, 1 IN 1 D, ORAL; 10 MG, 1 IN 1 D, ORAL
     Route: 048
     Dates: start: 20071205, end: 20071218
  3. REVLIMID [Suspect]
     Indication: MULTIPLE MYELOMA
     Dosage: 15 MG, 1 IN 1 D, ORAL; 10 MG, 1 IN 1 D, ORAL
     Route: 048
     Dates: start: 20071221, end: 20080101
  4. REVLIMID [Suspect]
     Indication: NEOPLASM
     Dosage: 15 MG, 1 IN 1 D, ORAL; 10 MG, 1 IN 1 D, ORAL
     Route: 048
     Dates: start: 20071221, end: 20080101

REACTIONS (4)
  - BLOOD COUNT ABNORMAL [None]
  - DISEASE PROGRESSION [None]
  - PLATELET COUNT DECREASED [None]
  - PROSTATE CANCER [None]
